FAERS Safety Report 4960143-0 (Version None)
Quarter: 2006Q1

REPORT INFORMATION
  Report Type: 
  Country: None (occurrence: None)
  Receive Date: 20060328
  Receipt Date: 20060315
  Transmission Date: 20060701
  Serious: Yes (Hospitalization, Other)
  Sender: FDA-Public Use
  Company Number: 2006013531

PATIENT
  Sex: Female
  Weight: 81.6475 kg

DRUGS (7)
  1. DETROL LA [Suspect]
     Indication: HYPERTONIC BLADDER
     Dosage: ORAL
     Route: 048
     Dates: start: 20030101
  2. LOTENSIN [Concomitant]
  3. NORVASC [Concomitant]
  4. NEXIUM [Concomitant]
  5. XANAX [Concomitant]
  6. ANTIDEPRESSANTS (ANTIDEPRESSANTS) [Concomitant]
  7. TRAZODONE HCL [Concomitant]

REACTIONS (7)
  - BLOOD PRESSURE INCREASED [None]
  - CEREBROVASCULAR ACCIDENT [None]
  - DRUG HYPERSENSITIVITY [None]
  - ERYTHEMA [None]
  - FOOT FRACTURE [None]
  - PARKINSON'S DISEASE [None]
  - WEIGHT INCREASED [None]
